FAERS Safety Report 10020128 (Version 1)
Quarter: 2014Q1

REPORT INFORMATION
  Report Type: Report from Study
  Country: US (occurrence: US)
  Receive Date: 20140319
  Receipt Date: 20140319
  Transmission Date: 20141002
  Serious: Yes (Hospitalization)
  Sender: FDA-Public Use
  Company Number: US-009507513-1403USA007403

PATIENT
  Age: 68 Year
  Sex: Female
  Weight: 95.5 kg

DRUGS (4)
  1. VORINOSTAT [Suspect]
     Indication: MYELODYSPLASTIC SYNDROME
     Dosage: 300 MG, BID ON DAYS 3-9
     Route: 048
     Dates: start: 20130207
  2. VORINOSTAT [Suspect]
     Dosage: 300 MG, BID ON DAYS 3-9
     Route: 048
     Dates: start: 20140204, end: 20140212
  3. AZACITIDINE [Suspect]
     Indication: MYELODYSPLASTIC SYNDROME
     Dosage: 75 MG/M2 SQ OR IV ON DAYS 1-7 OR 75 MG/M2 SQ OR IV ON DAYS 1-5 AND DAYS 8-9
     Route: 058
     Dates: start: 20130207
  4. AZACITIDINE [Suspect]
     Dosage: 75 MG/M2 SQ OR IV ON DAYS 1-7 OR 75 MG/M2 SQ OR IV ON DAYS 1-5 AND DAYS 8-9
     Route: 058
     Dates: start: 20130204, end: 20140210

REACTIONS (2)
  - Infection [Unknown]
  - Infestation [Unknown]
